FAERS Safety Report 7295406-X (Version None)
Quarter: 2011Q1

REPORT INFORMATION
  Report Type: 
  Country: None (occurrence: None)
  Receive Date: 20110211
  Receipt Date: 20110211
  Transmission Date: 20110831
  Serious: Yes (Other)
  Sender: FDA-Public Use
  Company Number: None

PATIENT
  Age: 44 Year
  Sex: Female
  Weight: 65.7716 kg

DRUGS (1)
  1. LEVAQUIN [Suspect]
     Dosage: ONE PILL DAILY PO
     Route: 048
     Dates: start: 20101212, end: 20101215

REACTIONS (6)
  - DIZZINESS [None]
  - CONFUSIONAL STATE [None]
  - TENDON PAIN [None]
  - NAUSEA [None]
  - HEADACHE [None]
  - GAIT DISTURBANCE [None]
